FAERS Safety Report 9443556 (Version 1)
Quarter: 2013Q3

REPORT INFORMATION
  Report Type: Spontaneous
  Country: US (occurrence: US)
  Receive Date: 20130806
  Receipt Date: 20130806
  Transmission Date: 20140515
  Serious: No
  Sender: FDA-Public Use
  Company Number: US-PFIZER INC-2013226662

PATIENT
  Age: 61 Year
  Sex: Male
  Weight: 88.44 kg

DRUGS (6)
  1. AMLODIPINE BESILATE [Suspect]
     Indication: HYPERTENSION
     Dosage: 10 MG, DAILY
  2. CARVEDILOL [Suspect]
     Indication: HYPERTENSION
     Dosage: 12.5 MG, DAILY
  3. HYDROCHLOROTHIAZIDE\LOSARTAN POTASSIUM [Suspect]
     Indication: HYPERTENSION
     Dosage: 100MG/25MG DAILY
  4. OXYCODONE HYDROCHLORIDE [Suspect]
     Dosage: 10 MG, DAILY
  5. LYRICA [Suspect]
     Indication: NERVE INJURY
     Dosage: 75 MG, 2X/DAY
     Route: 048
     Dates: start: 201208
  6. BUPROPION XL [Suspect]
     Dosage: 150 MG, DAILY

REACTIONS (1)
  - Dyspnoea [Not Recovered/Not Resolved]
